FAERS Safety Report 24134247 (Version 1)
Quarter: 2024Q3

REPORT INFORMATION
  Report Type: Report from Study
  Country: US (occurrence: US)
  Receive Date: 20240724
  Receipt Date: 20240724
  Transmission Date: 20241017
  Serious: Yes (Other)
  Sender: ABBVIE
  Company Number: US-ABBVIE-5845262

PATIENT
  Sex: Female

DRUGS (1)
  1. IMBRUVICA [Suspect]
     Active Substance: IBRUTINIB
     Indication: Monoclonal gammopathy
     Route: 048
     Dates: start: 202102

REACTIONS (6)
  - Urinary bladder haemorrhage [Recovered/Resolved]
  - Diarrhoea [Unknown]
  - Nocturia [Unknown]
  - Incontinence [Unknown]
  - Cystitis [Unknown]
  - Atrial fibrillation [Unknown]

NARRATIVE: CASE EVENT DATE: 20240101
